FAERS Safety Report 13635160 (Version 1)
Quarter: 2017Q2

REPORT INFORMATION
  Report Type: Spontaneous
  Country: US (occurrence: US)
  Receive Date: 20170531
  Receipt Date: 20170531
  Transmission Date: 20170830
  Serious: No
  Sender: FDA-Public Use
  Company Number: US-ASTELLAS-1691233

PATIENT
  Sex: Female

DRUGS (6)
  1. TARCEVA [Suspect]
     Active Substance: ERLOTINIB HYDROCHLORIDE
     Indication: PANCREATIC CARCINOMA
     Route: 048
     Dates: start: 20151210
  2. ACETAMINOPHEN/OXYCODONE [Concomitant]
     Active Substance: ACETAMINOPHEN\OXYCODONE HYDROCHLORIDE
  3. LOSARTAN POTASSIUM. [Concomitant]
     Active Substance: LOSARTAN POTASSIUM
  4. SYNTHROID [Concomitant]
     Active Substance: LEVOTHYROXINE SODIUM
  5. HYDROCHLOROTHIAZIDE. [Concomitant]
     Active Substance: HYDROCHLOROTHIAZIDE
  6. CEPHALEXIN. [Concomitant]
     Active Substance: CEPHALEXIN

REACTIONS (7)
  - Vomiting [Unknown]
  - Nausea [Unknown]
  - Urinary tract infection [Unknown]
  - Diarrhoea [Unknown]
  - Dry skin [Unknown]
  - Abdominal discomfort [Unknown]
  - Malaise [Unknown]
